FAERS Safety Report 17128600 (Version 1)
Quarter: 2019Q4

REPORT INFORMATION
  Report Type: Spontaneous
  Country: US (occurrence: US)
  Receive Date: 20191209
  Receipt Date: 20191209
  Transmission Date: 20200122
  Serious: No
  Sender: FDA-Public Use
  Company Number: US-HORIZON-VIM-0395-2019

PATIENT
  Age: 61 Year
  Sex: Female

DRUGS (10)
  1. PANTOPRAZOLE [Concomitant]
     Active Substance: PANTOPRAZOLE
  2. SIMVASTATIN. [Concomitant]
     Active Substance: SIMVASTATIN
  3. VIBERZI [Concomitant]
     Active Substance: ELUXADOLINE
  4. VIMOVO [Suspect]
     Active Substance: ESOMEPRAZOLE MAGNESIUM\NAPROXEN
     Indication: PRODUCT USED FOR UNKNOWN INDICATION
     Dosage: 2 TABLETS PER DAY
     Dates: start: 20191127, end: 20191201
  5. METOLAZONE. [Concomitant]
     Active Substance: METOLAZONE
  6. METOPROLOL. [Concomitant]
     Active Substance: METOPROLOL
  7. KLOR-CON [Concomitant]
     Active Substance: POTASSIUM CHLORIDE
  8. DICYCLOMINE [Concomitant]
     Active Substance: DICYCLOMINE HYDROCHLORIDE
  9. QUINAPRIL. [Concomitant]
     Active Substance: QUINAPRIL
  10. JANUVIA [Concomitant]
     Active Substance: SITAGLIPTIN PHOSPHATE

REACTIONS (2)
  - Abdominal pain upper [Not Recovered/Not Resolved]
  - Nausea [Not Recovered/Not Resolved]

NARRATIVE: CASE EVENT DATE: 20191127
